FAERS Safety Report 25462295 (Version 6)
Quarter: 2025Q3

REPORT INFORMATION
  Report Type: Spontaneous
  Country: CO (occurrence: CO)
  Receive Date: 20250620
  Receipt Date: 20250902
  Transmission Date: 20251020
  Serious: No
  Sender: PFIZER
  Company Number: CO-PFIZER INC-202500119824

PATIENT
  Age: 13 Year
  Sex: Male
  Weight: 35 kg

DRUGS (2)
  1. GENOTROPIN [Suspect]
     Active Substance: SOMATROPIN
     Indication: Growth disorder
     Dosage: 1.4 MG, WEEKLY
     Route: 058
  2. GENOTROPIN [Suspect]
     Active Substance: SOMATROPIN
     Dosage: 1.6 MG, 1X/DAY
     Route: 058

REACTIONS (3)
  - Device mechanical issue [Unknown]
  - Device leakage [Unknown]
  - Drug dose omission by device [Unknown]

NARRATIVE: CASE EVENT DATE: 20250601
